FAERS Safety Report 23906594 (Version 2)
Quarter: 2024Q2

REPORT INFORMATION
  Report Type: Other
  Country: NL (occurrence: NL)
  Receive Date: 20240528
  Receipt Date: 20240604
  Transmission Date: 20240716
  Serious: No
  Sender: FDA-Public Use
  Company Number: NL-Bion-013141

PATIENT
  Weight: 0 kg

DRUGS (1)
  1. VALPROIC ACID [Suspect]
     Active Substance: VALPROIC ACID
     Indication: Bipolar disorder

REACTIONS (2)
  - Toxicity to various agents [Unknown]
  - Cognitive disorder [Unknown]
